FAERS Safety Report 4653091-7 (Version None)
Quarter: 2005Q2

REPORT INFORMATION
  Report Type: 
  Country: None (occurrence: None)
  Receive Date: 20050505
  Receipt Date: 20050119
  Transmission Date: 20051028
  Serious: Yes (Other)
  Sender: FDA-Public Use
  Company Number: DE-SANOFI-SYNTHELABO-A04200500046

PATIENT
  Sex: Male
  Weight: 76 kg

DRUGS (6)
  1. ELOXATIN [Suspect]
     Indication: COLON CANCER
     Route: 041
     Dates: start: 20050104, end: 20050104
  2. FLUOROURACIL [Concomitant]
     Indication: COLON CANCER
     Route: 041
     Dates: start: 20050104, end: 20050105
  3. KEVATRIL [Concomitant]
     Indication: PROPHYLAXIS OF NAUSEA AND VOMITING
     Route: 042
     Dates: start: 20050104, end: 20050104
  4. DEXAMETHASONE [Concomitant]
     Indication: PROPHYLAXIS OF NAUSEA AND VOMITING
     Route: 042
     Dates: start: 20050104, end: 20050104
  5. RANITIDINE HCL [Concomitant]
     Indication: PREMEDICATION
     Route: 042
     Dates: start: 20050104, end: 20050104
  6. CLEMASTINE FUMARATE [Concomitant]
     Indication: PREMEDICATION
     Route: 042
     Dates: start: 20050104, end: 20050104

REACTIONS (6)
  - CHEST PAIN [None]
  - DYSPNOEA [None]
  - GRAND MAL CONVULSION [None]
  - HYPERTENSION [None]
  - INFECTION [None]
  - NEUROTOXICITY [None]
